FAERS Safety Report 18014470 (Version 1)
Quarter: 2020Q3

REPORT INFORMATION
  Report Type: Spontaneous
  Country: US (occurrence: US)
  Receive Date: 20200713
  Receipt Date: 20200713
  Transmission Date: 20201103
  Serious: Yes (Life-Threatening, Hospitalization, Disabling, Other)
  Sender: FDA-Public Use
  Company Number: None

PATIENT
  Age: 63 Year
  Sex: Male
  Weight: 72 kg

DRUGS (3)
  1. LUPRON DEPOT [Suspect]
     Active Substance: LEUPROLIDE ACETATE
     Indication: PROSTATE CANCER
     Dates: start: 20171228, end: 20181230
  2. LOSARTAN 50MG [Concomitant]
     Active Substance: LOSARTAN
  3. PROBIOTICS [Concomitant]
     Active Substance: PROBIOTICS NOS

REACTIONS (4)
  - Rheumatoid arthritis [None]
  - Visual field defect [None]
  - Cerebral haemorrhage [None]
  - Knee arthroplasty [None]

NARRATIVE: CASE EVENT DATE: 20171228
